FAERS Safety Report 17005790 (Version 1)
Quarter: 2019Q4

REPORT INFORMATION
  Report Type: Spontaneous
  Country: JP (occurrence: JP)
  Receive Date: 20191107
  Receipt Date: 20191107
  Transmission Date: 20200122
  Serious: Yes (Other)
  Sender: FDA-Public Use
  Company Number: JP-ROCHE-2459183

PATIENT
  Age: 85 Year
  Sex: Female

DRUGS (8)
  1. EDIROL [Suspect]
     Active Substance: ELDECALCITOL
     Indication: OSTEOPOROSIS
     Route: 048
  2. BAYASPIRIN [Suspect]
     Active Substance: ASPIRIN
     Indication: LEUKAEMIA
     Dosage: UNKNOWN
     Route: 065
  3. TELMISARTAN. [Suspect]
     Active Substance: TELMISARTAN
     Indication: LEUKAEMIA
     Dosage: UNKNOWN
     Route: 065
  4. MAGMITT [Suspect]
     Active Substance: MAGNESIUM OXIDE
     Indication: LEUKAEMIA
     Dosage: UNKNOWN
     Route: 065
  5. CALCIUM CARBONATE. [Suspect]
     Active Substance: CALCIUM CARBONATE
     Indication: LEUKAEMIA
     Dosage: UNKNOWN
     Route: 065
  6. SODIUM RABEPRAZOLE [Suspect]
     Active Substance: RABEPRAZOLE SODIUM
     Indication: LEUKAEMIA
     Dosage: UNKNOWN
     Route: 065
  7. BONVIVA [Suspect]
     Active Substance: IBANDRONATE SODIUM
     Indication: OSTEOPOROSIS
     Route: 042
  8. HYDREA [Suspect]
     Active Substance: HYDROXYUREA
     Indication: LEUKAEMIA
     Route: 065
     Dates: end: 201910

REACTIONS (2)
  - Cytopenia [Unknown]
  - Face oedema [Not Recovered/Not Resolved]

NARRATIVE: CASE EVENT DATE: 201910
